FAERS Safety Report 17721450 (Version 3)
Quarter: 2023Q1

REPORT INFORMATION
  Report Type: Spontaneous
  Country: US (occurrence: US)
  Receive Date: 20200429
  Receipt Date: 20230202
  Transmission Date: 20230418
  Serious: Yes (Hospitalization, Other)
  Sender: FDA-Public Use
  Company Number: US-PERRIGO-20US005774

PATIENT

DRUGS (6)
  1. PREVACID 24 HR [Suspect]
     Active Substance: LANSOPRAZOLE
     Indication: Dyspepsia
     Dosage: UNK
     Route: 065
     Dates: start: 2004, end: 2012
  2. PREVACID [Suspect]
     Active Substance: LANSOPRAZOLE
     Indication: Product used for unknown indication
     Dosage: UNK
     Route: 065
  3. PANTOPRAZOLE [Suspect]
     Active Substance: PANTOPRAZOLE
     Indication: Dyspepsia
     Dosage: 40 MG, QD
     Route: 065
     Dates: start: 20120911, end: 20121230
  4. PRILOSEC [Suspect]
     Active Substance: OMEPRAZOLE MAGNESIUM
     Indication: Dyspepsia
     Dosage: UNK, UNK
     Route: 065
     Dates: start: 1990, end: 2003
  5. PRILOSEC [Suspect]
     Active Substance: OMEPRAZOLE MAGNESIUM
     Indication: Dyspepsia
     Dosage: UNK
     Route: 065
     Dates: start: 2004, end: 2012
  6. PANTOPRAZOLE SODIUM [Suspect]
     Active Substance: PANTOPRAZOLE SODIUM
     Indication: Product used for unknown indication
     Dosage: UNK
     Route: 065
     Dates: start: 20120911, end: 20121030

REACTIONS (20)
  - Gastric cancer [Unknown]
  - Gastrectomy [Unknown]
  - Adenocarcinoma gastric [Unknown]
  - Oesophageal adenocarcinoma [Unknown]
  - Dyspepsia [Unknown]
  - Stomach mass [Unknown]
  - Chronic gastritis [Unknown]
  - Abdominal pain [Unknown]
  - Oesophagoenterostomy [Unknown]
  - Jejunostomy [Unknown]
  - Abdominal pain [Unknown]
  - Abdominal distension [Unknown]
  - Muscle spasms [Unknown]
  - Diarrhoea [Unknown]
  - Nerve injury [Unknown]
  - Fatigue [Unknown]
  - Gastrointestinal neoplasm [Unknown]
  - Gastric disorder [Unknown]
  - Gastritis [Unknown]
  - Abdominal distension [Unknown]

NARRATIVE: CASE EVENT DATE: 20120901
